FAERS Safety Report 7728863-2 (Version None)
Quarter: 2011Q3

REPORT INFORMATION
  Report Type: 
  Country: None (occurrence: None)
  Receive Date: 20110906
  Receipt Date: 20110818
  Transmission Date: 20111222
  Serious: No
  Sender: FDA-Public Use
  Company Number: US-ROXANE LABORATORIES, INC.-2011-RO-01214RO

PATIENT
  Age: 59 Year
  Sex: Female
  Weight: 69 kg

DRUGS (4)
  1. MORPHINE [Suspect]
  2. ERYTHROMYCIN [Suspect]
  3. CODEINE SUL TAB [Suspect]
  4. PENICILLIN [Suspect]

REACTIONS (1)
  - DRUG HYPERSENSITIVITY [None]
